FAERS Safety Report 12733512 (Version 2)
Quarter: 2016Q3

REPORT INFORMATION
  Report Type: Spontaneous
  Country: SE (occurrence: SE)
  Receive Date: 20160912
  Receipt Date: 20160912
  Transmission Date: 20161109
  Serious: Yes (Congenital Anomaly, Other)
  Sender: FDA-Public Use
  Company Number: SE-ABBVIE-12P-150-0935359-00

PATIENT
  Age: 1 Day
  Sex: Female

DRUGS (4)
  1. IKTORIVIL [Suspect]
     Active Substance: CLONAZEPAM
     Route: 063
  2. ERGENYL RETARD [Suspect]
     Active Substance: VALPROIC ACID
     Indication: MATERNAL EXPOSURE TIMING UNSPECIFIED
     Route: 064
  3. ERGENYL RETARD [Suspect]
     Active Substance: VALPROIC ACID
     Route: 063
  4. IKTORIVIL [Suspect]
     Active Substance: CLONAZEPAM
     Indication: MATERNAL EXPOSURE TIMING UNSPECIFIED
     Route: 064

REACTIONS (12)
  - Hypertelorism of orbit [Not Recovered/Not Resolved]
  - Fine motor delay [Not Recovered/Not Resolved]
  - Exposure during breast feeding [Unknown]
  - Foetal anticonvulsant syndrome [Not Recovered/Not Resolved]
  - Infection susceptibility increased [Not Recovered/Not Resolved]
  - Developmental delay [Not Recovered/Not Resolved]
  - Secretion discharge [Not Recovered/Not Resolved]
  - Lung disorder [Not Recovered/Not Resolved]
  - Congenital foot malformation [Not Recovered/Not Resolved]
  - Ankyloglossia congenital [Not Recovered/Not Resolved]
  - Foetal exposure during pregnancy [Unknown]
  - Autism [Not Recovered/Not Resolved]

NARRATIVE: CASE EVENT DATE: 20100619
